FAERS Safety Report 7208727-3 (Version None)
Quarter: 2010Q4

REPORT INFORMATION
  Report Type: 
  Country: None (occurrence: None)
  Receive Date: 20101222
  Receipt Date: 20101207
  Transmission Date: 20110411
  Serious: Yes (Death, Hospitalization)
  Sender: FDA-Public Use
  Company Number: 1000017753

PATIENT
  Age: 84 Year
  Sex: Female
  Weight: 58.9 kg

DRUGS (17)
  1. MEMANTINE [Suspect]
     Indication: DEMENTIA ALZHEIMER'S TYPE
     Dosage: 10 MG (10 MG,1 IN 1 D),ORAL
     Route: 048
     Dates: start: 20100501
  2. SEROQUEL [Suspect]
     Dosage: 25 MG (25 MG,1 IN 1 D) ; 50 MG (25 MG,2 IN 1 D),ORAL
     Route: 048
     Dates: start: 20100401, end: 20100501
  3. SEROQUEL [Suspect]
     Dosage: 25 MG (25 MG,1 IN 1 D) ; 50 MG (25 MG,2 IN 1 D),ORAL
     Route: 048
     Dates: start: 20100501
  4. PARALIEF (PARACETAMOL) (PARACETAMOL) [Concomitant]
  5. ANXICALM (DIAZEPAM) (DIAZEPAM) [Concomitant]
  6. FOLIC ACID [Concomitant]
  7. HALCION [Concomitant]
  8. NUSEALS ASPIRIN (ACETYLSALICYLIC ACID) (ACETYLSALICYLIC ACID) [Concomitant]
  9. SENOKOT [Concomitant]
  10. MIRTAZAPINE [Concomitant]
  11. TRITACE (RAMIPRIL) (RAMIPRIL) [Concomitant]
  12. NEXIUM [Concomitant]
  13. DIGOXIN [Concomitant]
  14. EMCOR (BISOPROLOL FUMARATE) (5 MILLIGRAM, TABLETS) (BISOPROLOL FUMARAT [Concomitant]
  15. BURINEX (BUMETANIDE) (TABLETS) (BUMETANIDE) [Concomitant]
  16. ASASANTIN (DIPYRIDAMOLE) (CAPSULES) (DIPYRIDAMOLE) [Concomitant]
  17. DUPHALAC [Concomitant]

REACTIONS (5)
  - NO THERAPEUTIC RESPONSE [None]
  - PNEUMONIA [None]
  - PRURITUS [None]
  - RASH GENERALISED [None]
  - RASH MACULAR [None]
